FAERS Safety Report 9657604 (Version 2)
Quarter: 2013Q4

REPORT INFORMATION
  Report Type: Spontaneous
  Country: US (occurrence: US)
  Receive Date: 20131030
  Receipt Date: 20131030
  Transmission Date: 20140711
  Serious: Yes (Death, Other)
  Sender: FDA-Public Use
  Company Number: US-NAPPMUNDI-USA-2010-0061549

PATIENT
  Age: 20 Year
  Sex: Male

DRUGS (10)
  1. OXYCONTIN TABLETS [Suspect]
     Indication: CHEST PAIN
  2. OXYCODONE HYDROCHLORIDE (SIMILAR TO NDA 20-553) [Suspect]
     Indication: CHEST PAIN
  3. MORPHINE SULFATE (SIMILAR TO NDA 19-516) [Suspect]
     Indication: CHEST PAIN
  4. DILAUDID TABLET [Suspect]
     Indication: CHEST PAIN
  5. ATIVAN [Suspect]
     Indication: ANXIETY
  6. XANAX [Suspect]
     Indication: ANXIETY
  7. KLONOPIN [Suspect]
     Indication: ANXIETY
  8. AMBIEN [Suspect]
     Indication: ANXIETY
  9. LUNESTA [Suspect]
     Indication: INSOMNIA
  10. FENTANYL [Suspect]
     Indication: PAIN
     Route: 058

REACTIONS (6)
  - Overdose [Fatal]
  - Respiratory failure [Fatal]
  - Unresponsive to stimuli [Fatal]
  - Respiratory arrest [Fatal]
  - Respiratory rate decreased [Unknown]
  - Somnolence [Unknown]
